FAERS Safety Report 9268552 (Version 2)
Quarter: 2013Q4

REPORT INFORMATION
  Report Type: Spontaneous
  Country: US (occurrence: US)
  Receive Date: 20130502
  Receipt Date: 20131118
  Transmission Date: 20140711
  Serious: Yes (Other)
  Sender: FDA-Public Use
  Company Number: CHPA2013US007230

PATIENT
  Sex: Female

DRUGS (1)
  1. DESENEX - UNKNOWN FORM [Suspect]
     Indication: FUNGAL INFECTION
     Dosage: UNK, UNK
     Route: 061

REACTIONS (3)
  - Inflammation [Recovering/Resolving]
  - Dermatitis contact [Recovering/Resolving]
  - Hyperkeratosis [Recovering/Resolving]
